FAERS Safety Report 6671880-4 (Version None)
Quarter: 2010Q2

REPORT INFORMATION
  Report Type: 
  Country: None (occurrence: None)
  Receive Date: 20100407
  Receipt Date: 20100330
  Transmission Date: 20101027
  Serious: Yes (Life-Threatening, Hospitalization, Other)
  Sender: FDA-Public Use
  Company Number: BE-PFIZER INC-2010000140

PATIENT
  Age: 65 Year
  Sex: Female
  Weight: 68 kg

DRUGS (13)
  1. CELEBREX [Suspect]
     Indication: OSTEOARTHRITIS
     Dosage: 200 MG, ALTERNATE DAY
     Route: 048
     Dates: start: 20091204, end: 20091231
  2. CELEBREX [Suspect]
     Indication: ABDOMINAL DISCOMFORT
  3. INFLUENZA VACCINE [Concomitant]
     Dosage: UNK
     Dates: start: 20091028, end: 20091028
  4. INFLUENZA VIRUS VACCINE MONOVALENT [Concomitant]
     Dosage: UNK
     Dates: start: 20091109, end: 20091109
  5. DAFALGAN [Concomitant]
     Dosage: 1 G, 3X/DAY
     Route: 048
     Dates: start: 20090422
  6. ASAFLOW [Concomitant]
     Dosage: 80 MG, 1X/DAY
     Route: 048
     Dates: start: 20030319
  7. ELTHYRONE [Concomitant]
     Dosage: 100 UG, 1X/DAY
  8. FLUOXETINE [Concomitant]
     Dosage: 20 MG, 1X/DAY
     Route: 048
     Dates: start: 20050816
  9. COVERSYL [Concomitant]
     Dosage: 10 MG, 1X/DAY
     Route: 048
     Dates: start: 20090204
  10. DEANXIT [Concomitant]
     Dosage: UNK
     Route: 048
     Dates: start: 20050319
  11. XANAX [Concomitant]
     Dosage: 1 MG, 1X/DAY
     Route: 048
     Dates: start: 20070405
  12. PANTOPRAZOL [Concomitant]
     Dosage: 40 MG, 1X/DAY
     Dates: start: 20090902
  13. ZOCOR [Concomitant]
     Dosage: 20 MG, 1X/DAY
     Route: 048
     Dates: start: 20050301

REACTIONS (2)
  - MYELODYSPLASTIC SYNDROME [None]
  - PNEUMONIA [None]
